FAERS Safety Report 18814209 (Version 1)
Quarter: 2021Q1

REPORT INFORMATION
  Report Type: Spontaneous
  Country: CN (occurrence: CN)
  Receive Date: 20210201
  Receipt Date: 20210201
  Transmission Date: 20210419
  Serious: Yes (Other)
  Sender: FDA-Public Use
  Company Number: CN-GILEAD-2021-0514494

PATIENT
  Age: 45 Year
  Sex: Male

DRUGS (1)
  1. VIREAD [Suspect]
     Active Substance: TENOFOVIR DISOPROXIL FUMARATE
     Indication: CHRONIC HEPATITIS B
     Dosage: 300 MG, QD
     Route: 048
     Dates: start: 201604, end: 201709

REACTIONS (2)
  - Fanconi syndrome acquired [Recovered/Resolved]
  - Hypophosphataemic osteomalacia [Recovered/Resolved]

NARRATIVE: CASE EVENT DATE: 201703
